FAERS Safety Report 10550299 (Version 2)
Quarter: 2014Q4

REPORT INFORMATION
  Report Type: Spontaneous
  Country: FR (occurrence: FR)
  Receive Date: 20141029
  Receipt Date: 20141127
  Transmission Date: 20150529
  Serious: Yes (Death)
  Sender: FDA-Public Use
  Company Number: FR-ROCHE-1479891

PATIENT
  Age: 91 Year
  Sex: Male

DRUGS (15)
  1. MORPHINE HYDROCHLORIDE [Suspect]
     Active Substance: MORPHINE HYDROCHLORIDE
     Indication: PAIN
     Route: 042
     Dates: start: 20140718, end: 20140721
  2. HYPNOVEL (INJ) [Suspect]
     Active Substance: MIDAZOLAM\MIDAZOLAM HYDROCHLORIDE
     Indication: PRODUCT USED FOR UNKNOWN INDICATION
     Route: 042
     Dates: start: 20140720, end: 20140726
  3. ATROVENT [Concomitant]
     Active Substance: IPRATROPIUM BROMIDE
     Route: 065
     Dates: start: 20140718, end: 20140722
  4. VITAMINE K1 ROCHE [Concomitant]
     Route: 065
     Dates: start: 20140718
  5. SCOBUREN [Concomitant]
     Route: 065
     Dates: start: 20140718, end: 20140719
  6. BRICANYL [Concomitant]
     Active Substance: TERBUTALINE SULFATE
     Route: 065
     Dates: start: 20140718, end: 20140722
  7. PERFALGAN [Suspect]
     Active Substance: ACETAMINOPHEN
     Indication: PAIN
     Route: 042
     Dates: start: 20140718, end: 20140721
  8. SOLU-MEDROL [Suspect]
     Active Substance: METHYLPREDNISOLONE SODIUM SUCCINATE
     Indication: PAIN
     Route: 042
     Dates: start: 20140718, end: 20140726
  9. ENANTONE LP [Suspect]
     Active Substance: LEUPROLIDE ACETATE
     Indication: PROSTATE CANCER METASTATIC
     Dosage: 1 INJECTION EVERY 6 MONTHS
     Route: 058
     Dates: start: 201004, end: 2014
  10. HYPNOVEL (FRANCE) [Concomitant]
     Active Substance: MIDAZOLAM\MIDAZOLAM HYDROCHLORIDE
     Route: 065
     Dates: start: 20140720, end: 20140726
  11. ROCEPHINE [Suspect]
     Active Substance: CEFTRIAXONE SODIUM
     Indication: LUNG DISORDER
     Route: 042
     Dates: start: 20140719, end: 20140726
  12. OFLOCET [Suspect]
     Active Substance: OFLOXACIN
     Indication: PRODUCT USED FOR UNKNOWN INDICATION
     Dosage: 200 MG/40 ML
     Route: 041
     Dates: start: 20140718, end: 20140726
  13. BRICANYL [Suspect]
     Active Substance: TERBUTALINE SULFATE
     Indication: PRODUCT USED FOR UNKNOWN INDICATION
     Route: 055
     Dates: start: 20140718, end: 20140722
  14. LASILIX [Concomitant]
     Active Substance: FUROSEMIDE
     Route: 065
     Dates: start: 20140718
  15. ATROVENT [Suspect]
     Active Substance: IPRATROPIUM BROMIDE
     Indication: PRODUCT USED FOR UNKNOWN INDICATION
     Route: 055
     Dates: start: 20140718, end: 20140722

REACTIONS (3)
  - Hepatocellular injury [Fatal]
  - Acute hepatic failure [Fatal]
  - Cholestasis [Fatal]

NARRATIVE: CASE EVENT DATE: 20140721
